FAERS Safety Report 8259389-8 (Version None)
Quarter: 2012Q2

REPORT INFORMATION
  Report Type: 
  Country: None (occurrence: None)
  Receive Date: 20120404
  Receipt Date: 20120330
  Transmission Date: 20120825
  Serious: Yes (Death, Hospitalization, Disabling)
  Sender: FDA-Public Use
  Company Number: US-CELGENEUS-163-21880-11043224

PATIENT
  Sex: Male

DRUGS (9)
  1. COUMADIN [Suspect]
     Route: 065
  2. REVLIMID [Suspect]
     Dosage: 5 MILLIGRAM
     Route: 048
     Dates: start: 20110801
  3. REVLIMID [Suspect]
     Indication: MYELOFIBROSIS
     Dosage: 10 MILLIGRAM
     Route: 048
     Dates: start: 20110301
  4. REVLIMID [Suspect]
     Dosage: 5 MILLIGRAM
     Route: 048
     Dates: start: 20111028, end: 20120101
  5. FLOMAX [Suspect]
     Route: 065
  6. PREDNISONE TAB [Concomitant]
     Route: 065
  7. PAXIL [Concomitant]
     Route: 065
  8. XANAX [Concomitant]
     Route: 065
  9. REVLIMID [Suspect]
     Dosage: 5 MILLIGRAM
     Route: 048
     Dates: start: 20110519, end: 20110531

REACTIONS (4)
  - FULL BLOOD COUNT DECREASED [None]
  - NAUSEA [None]
  - LUNG CANCER METASTATIC [None]
  - HAEMORRHAGE URINARY TRACT [None]
